FAERS Safety Report 8460473-4 (Version None)
Quarter: 2012Q2

REPORT INFORMATION
  Report Type: 
  Country: None (occurrence: None)
  Receive Date: 20120622
  Receipt Date: 20120619
  Transmission Date: 20120825
  Serious: Yes (Other)
  Sender: FDA-Public Use
  Company Number: US-PFIZER INC-2012147695

PATIENT
  Sex: Female

DRUGS (5)
  1. MULTI-VITAMINS [Concomitant]
     Dosage: UNK
  2. EFFEXOR XR [Suspect]
     Dosage: 150 MG, UNK
  3. LAMOTRIGINE [Suspect]
     Indication: BIPOLAR DISORDER
     Dosage: 1 DF, PER DAY
     Route: 048
     Dates: start: 20110901, end: 20120514
  4. CO-Q-10 [Concomitant]
     Dosage: UNK
  5. SIMVASTATIN [Concomitant]
     Dosage: UNK

REACTIONS (9)
  - MANIA [None]
  - RASH PRURITIC [None]
  - ELECTROLYTE IMBALANCE [None]
  - DEPRESSION [None]
  - FEELING ABNORMAL [None]
  - AGITATION [None]
  - INSOMNIA [None]
  - FATIGUE [None]
  - RASH [None]
